FAERS Safety Report 8613287-6 (Version None)
Quarter: 2012Q3

REPORT INFORMATION
  Report Type: 
  Country: None (occurrence: None)
  Receive Date: 20120822
  Receipt Date: 20120719
  Transmission Date: 20120928
  Serious: No
  Sender: FDA-Public Use
  Company Number: US-009507513-1207USA008599

PATIENT

DRUGS (2)
  1. METFORMIN [Concomitant]
  2. ZETIA [Suspect]
     Indication: LIPIDS
     Dosage: 0.5 OF A TABLET, QD
     Route: 048
     Dates: end: 20120101

REACTIONS (2)
  - MYOPATHY [None]
  - WRONG TECHNIQUE IN DRUG USAGE PROCESS [None]
